FAERS Safety Report 7262164-4 (Version None)
Quarter: 2011Q1

REPORT INFORMATION
  Report Type: 
  Country: None (occurrence: None)
  Receive Date: 20110130
  Receipt Date: 20101213
  Transmission Date: 20110831
  Serious: No
  Sender: FDA-Public Use
  Company Number: US-ABBOTT-10P-163-0691652-00

PATIENT
  Sex: Female
  Weight: 49.94 kg

DRUGS (2)
  1. HUMIRA [Suspect]
     Indication: RHEUMATOID ARTHRITIS
     Dates: start: 20070101, end: 20091001
  2. HUMIRA [Suspect]
     Dates: start: 20101213

REACTIONS (3)
  - STAPHYLOCOCCAL INFECTION [None]
  - POOR QUALITY SLEEP [None]
  - RHEUMATOID ARTHRITIS [None]
